FAERS Safety Report 9846868 (Version 3)
Quarter: 2014Q2

REPORT INFORMATION
  Report Type: Spontaneous
  Country: US (occurrence: US)
  Receive Date: 20140127
  Receipt Date: 20140424
  Transmission Date: 20141212
  Serious: Yes (Hospitalization, Other)
  Sender: FDA-Public Use
  Company Number: US-PFIZER INC-2014021629

PATIENT
  Age: 61 Year
  Sex: Male
  Weight: 132 kg

DRUGS (6)
  1. INLYTA [Suspect]
     Indication: METASTATIC RENAL CELL CARCINOMA
     Dosage: 5 MG, 2X/DAY
     Route: 048
     Dates: end: 20140107
  2. LOVENOX [Concomitant]
     Indication: THROMBOSIS PROPHYLAXIS
     Dosage: UNK
  3. ZOLOFT [Concomitant]
     Indication: DEPRESSION
     Dosage: 25 MG DAILY
     Route: 048
  4. PROTONIX [Concomitant]
     Indication: PROPHYLAXIS
  5. PERCOCET [Concomitant]
     Dosage: AS NEEDED
  6. CLARINEX [Concomitant]
     Dosage: 1 DF (1 TABLET), DAILY
     Route: 048

REACTIONS (8)
  - Gastrointestinal necrosis [Recovering/Resolving]
  - Intestinal ischaemia [Recovering/Resolving]
  - Intestinal perforation [Recovering/Resolving]
  - Septic shock [Recovered/Resolved]
  - Renal failure acute [Unknown]
  - Hypotension [Recovered/Resolved]
  - Hyponatraemia [Recovered/Resolved]
  - Peritonitis [Recovered/Resolved]
